FAERS Safety Report 16705272 (Version 1)
Quarter: 2019Q3

REPORT INFORMATION
  Report Type: Spontaneous
  Country: GB (occurrence: GB)
  Receive Date: 20190815
  Receipt Date: 20190815
  Transmission Date: 20191004
  Serious: Yes (Life-Threatening, Disabling, Other)
  Sender: FDA-Public Use
  Company Number: GB-TEVA-2019-GB-1091875

PATIENT
  Age: 35 Year
  Sex: Female
  Weight: 77 kg

DRUGS (3)
  1. APIXABAN [Concomitant]
     Active Substance: APIXABAN
  2. CITALOPRAM HYDROBROMIDE. [Concomitant]
     Active Substance: CITALOPRAM HYDROBROMIDE
  3. NITROFURANTOIN. [Suspect]
     Active Substance: NITROFURANTOIN
     Indication: URINARY TRACT INFECTION
     Route: 048
     Dates: start: 20190703, end: 20190704

REACTIONS (15)
  - Skin discolouration [Recovering/Resolving]
  - Burning sensation [Unknown]
  - Dizziness [Recovering/Resolving]
  - Coordination abnormal [Recovering/Resolving]
  - Pruritus [Unknown]
  - Oropharyngeal pain [Unknown]
  - Clumsiness [Unknown]
  - Pyrexia [Recovering/Resolving]
  - Skin swelling [Recovering/Resolving]
  - Shock [Recovering/Resolving]
  - Confusional state [Recovering/Resolving]
  - Pain [Unknown]
  - Disorientation [Unknown]
  - Rash [Recovering/Resolving]
  - Fatigue [Recovering/Resolving]

NARRATIVE: CASE EVENT DATE: 20190703
